FAERS Safety Report 23878122 (Version 1)
Quarter: 2024Q2

REPORT INFORMATION
  Report Type: Spontaneous
  Country: US (occurrence: None)
  Receive Date: 20240520
  Receipt Date: 20240520
  Transmission Date: 20240716
  Serious: No
  Sender: FDA-Public Use
  Company Number: None

PATIENT
  Sex: Female

DRUGS (5)
  1. DEVICE [Suspect]
     Active Substance: DEVICE
     Dates: start: 202212
  2. TREPROSTINIL [Suspect]
     Active Substance: TREPROSTINIL
     Indication: Pulmonary arterial hypertension
     Dosage: OTHER QUANTITY : 104NG/KG/MIN;?OTHER FREQUENCY : CONTINUOUS;?
     Route: 042
     Dates: start: 202212
  3. DEVICE [Concomitant]
     Active Substance: DEVICE
  4. OPSUMIT [Concomitant]
     Active Substance: MACITENTAN
  5. SOD CHLOR SDV [Concomitant]

REACTIONS (5)
  - Device malfunction [None]
  - Catheter site discharge [None]
  - Infusion site irritation [None]
  - Product quality issue [None]
  - Device alarm issue [None]
